FAERS Safety Report 5820599-8 (Version None)
Quarter: 2008Q3

REPORT INFORMATION
  Report Type: 
  Country: None (occurrence: None)
  Receive Date: 20080718
  Receipt Date: 20080718
  Transmission Date: 20090109
  Serious: Yes (Other)
  Sender: FDA-Public Use
  Company Number: None

PATIENT
  Sex: Female
  Weight: 65 kg

DRUGS (3)
  1. HALOPERIDOL [Suspect]
     Indication: DELIRIUM
     Dosage: 25MG IV IM
     Route: 030
     Dates: start: 20080624, end: 20080625
  2. HALOPERIDOL [Suspect]
     Indication: DRUG WITHDRAWAL SYNDROME
     Dosage: 25MG IV IM
     Route: 030
     Dates: start: 20080624, end: 20080625
  3. HALOPERIDOL [Suspect]
     Indication: MENTAL STATUS CHANGES
     Dosage: 25MG IV IM
     Route: 030
     Dates: start: 20080624, end: 20080625

REACTIONS (9)
  - BLOOD CREATINE PHOSPHOKINASE INCREASED [None]
  - BLOOD CREATININE INCREASED [None]
  - HYPERNATRAEMIA [None]
  - HYPERTONIA [None]
  - NEUROLEPTIC MALIGNANT SYNDROME [None]
  - POSTURING [None]
  - PYREXIA [None]
  - RENAL INJURY [None]
  - TACHYCARDIA [None]
